FAERS Safety Report 19034588 (Version 3)
Quarter: 2021Q2

REPORT INFORMATION
  Report Type: Spontaneous
  Country: BE (occurrence: BE)
  Receive Date: 20210319
  Receipt Date: 20210422
  Transmission Date: 20210717
  Serious: Yes (Other)
  Sender: FDA-Public Use
  Company Number: BE-ORGANON-O2103BEL001893

PATIENT
  Sex: Female

DRUGS (1)
  1. IMPLANON NXT [Suspect]
     Active Substance: ETONOGESTREL
     Dosage: 1 IMPLANT
     Route: 059
     Dates: start: 2020

REACTIONS (6)
  - Complication associated with device [Unknown]
  - Pregnancy with implant contraceptive [Not Recovered/Not Resolved]
  - Implant site infection [Unknown]
  - Weight increased [Unknown]
  - Unintended pregnancy [Not Recovered/Not Resolved]
  - Device expulsion [Unknown]
